FAERS Safety Report 5426433-2 (Version None)
Quarter: 2007Q3

REPORT INFORMATION
  Report Type: 
  Country: None (occurrence: None)
  Receive Date: 20070731
  Receipt Date: 20070626
  Transmission Date: 20080115
  Serious: No
  Sender: FDA-Public Use
  Company Number: US200706006149

PATIENT
  Age: 47 Year
  Sex: Female

DRUGS (1)
  1. BYETTA [Suspect]
     Dosage: 10 UG, SUBCUTANEOUS, 10 UG
     Route: 058

REACTIONS (2)
  - BLOOD GLUCOSE DECREASED [None]
  - OVERDOSE [None]
